FAERS Safety Report 19470098 (Version 7)
Quarter: 2023Q1

REPORT INFORMATION
  Report Type: Report from Study
  Country: US (occurrence: US)
  Receive Date: 20210628
  Receipt Date: 20230315
  Transmission Date: 20230417
  Serious: Yes (Hospitalization, Other)
  Sender: FDA-Public Use
  Company Number: US-INCYTE CORPORATION-2021IN004322

PATIENT

DRUGS (5)
  1. JAKAFI [Suspect]
     Active Substance: RUXOLITINIB
     Indication: Myelofibrosis
     Dosage: 5 MILLIGRAM, BID
     Route: 048
     Dates: start: 202101, end: 202301
  2. JAKAFI [Suspect]
     Active Substance: RUXOLITINIB
     Indication: Polycythaemia vera
     Dosage: 5 MILLIGRAM, BID
     Route: 048
     Dates: start: 202102
  3. JAKAFI [Suspect]
     Active Substance: RUXOLITINIB
     Dosage: 5 MILLIGRAM, BID
     Route: 048
     Dates: start: 20210429
  4. DIOVAN [Concomitant]
     Active Substance: VALSARTAN
     Indication: Product used for unknown indication
     Dosage: ON A REGULAR BASIS
     Route: 065
  5. TOPROL XL [Concomitant]
     Active Substance: METOPROLOL SUCCINATE
     Indication: Product used for unknown indication
     Dosage: ON A REGULAR BASIS
     Route: 065

REACTIONS (30)
  - Intestinal obstruction [Unknown]
  - Gastrointestinal haemorrhage [Unknown]
  - Pneumonia [Unknown]
  - Sepsis [Unknown]
  - Diverticulitis intestinal haemorrhagic [Unknown]
  - Spinal disorder [Unknown]
  - Back pain [Unknown]
  - Eructation [Unknown]
  - Nail growth abnormal [Unknown]
  - Nail disorder [Unknown]
  - Pulmonary mass [Unknown]
  - Abdominal pain [Unknown]
  - Micturition urgency [Unknown]
  - Pollakiuria [Unknown]
  - White blood cell count decreased [Unknown]
  - Abdominal distension [Unknown]
  - Therapeutic response unexpected [Unknown]
  - Splenomegaly [Unknown]
  - Abdominal discomfort [Not Recovered/Not Resolved]
  - Gastric disorder [Not Recovered/Not Resolved]
  - Peripheral coldness [Unknown]
  - Peripheral vascular disorder [Unknown]
  - Impaired healing [Unknown]
  - Product availability issue [Unknown]
  - Flatulence [Unknown]
  - Constipation [Not Recovered/Not Resolved]
  - Dizziness [Not Recovered/Not Resolved]
  - Vertigo [Unknown]
  - Weight increased [Unknown]
  - Muscle spasms [Unknown]

NARRATIVE: CASE EVENT DATE: 20210101
